FAERS Safety Report 9325255 (Version 1)
Quarter: 2013Q2

REPORT INFORMATION
  Report Type: Spontaneous
  Country: GB (occurrence: GB)
  Receive Date: 20130604
  Receipt Date: 20130604
  Transmission Date: 20140414
  Serious: Yes (Hospitalization)
  Sender: FDA-Public Use
  Company Number: GB-ROCHE-1231197

PATIENT
  Sex: Female
  Weight: 67 kg

DRUGS (9)
  1. RITUXIMAB [Suspect]
     Indication: B-CELL LYMPHOMA
     Route: 065
     Dates: start: 20121128, end: 20130327
  2. CYCLOPHOSPHAMIDE [Suspect]
     Indication: B-CELL LYMPHOMA
     Route: 065
     Dates: start: 20121128, end: 20130327
  3. DOXORUBICIN HYDROCHLORIDE [Suspect]
     Indication: B-CELL LYMPHOMA
     Route: 065
     Dates: start: 20121128, end: 20130327
  4. PREDNISOLONE [Suspect]
     Indication: B-CELL LYMPHOMA
     Route: 065
     Dates: start: 20121128, end: 20130331
  5. VINCRISTINE [Suspect]
     Indication: B-CELL LYMPHOMA
     Route: 065
     Dates: start: 20121128, end: 20130327
  6. ALLOPURINOL [Concomitant]
     Route: 065
     Dates: start: 20121128
  7. OMEPRAZOLE [Concomitant]
     Route: 065
     Dates: start: 20121128
  8. ACYCLOVIR [Concomitant]
     Route: 065
     Dates: start: 20121128
  9. COTRIMOXAZOLE [Concomitant]
     Route: 065
     Dates: start: 20121128

REACTIONS (4)
  - Dysuria [Unknown]
  - Constipation [Unknown]
  - Stomatitis [Recovered/Resolved]
  - Febrile neutropenia [Recovered/Resolved]
